FAERS Safety Report 7078461-1 (Version None)
Quarter: 2010Q4

REPORT INFORMATION
  Report Type: 
  Country: None (occurrence: None)
  Receive Date: 20101101
  Receipt Date: 20101101
  Transmission Date: 20110411
  Serious: Yes (Life-Threatening)
  Sender: FDA-Public Use
  Company Number: None

PATIENT
  Sex: Female
  Weight: 90.7194 kg

DRUGS (16)
  1. OXYCONTIN [Suspect]
     Indication: CANCER PAIN
     Dosage: 40MG Q 8 HOURS PO 3-4 DOSES
     Route: 048
     Dates: start: 20101027, end: 20101028
  2. OXYCODONE [Concomitant]
  3. LORAZEPAM [Concomitant]
  4. ADVAIR [Concomitant]
  5. PRILOSEC [Concomitant]
  6. LASIX [Concomitant]
  7. CYMBALTA [Concomitant]
  8. BENADRYL [Concomitant]
  9. BENTYL [Concomitant]
  10. NOVOLOG [Concomitant]
  11. LEVAMIR [Concomitant]
  12. ALBUTEROL [Concomitant]
  13. ZYRTEC [Concomitant]
  14. SINGULAIR [Concomitant]
  15. COZAAR [Concomitant]
  16. ATENOLOL [Concomitant]

REACTIONS (3)
  - PHARYNGEAL OEDEMA [None]
  - PRODUCT FORMULATION ISSUE [None]
  - PRURITUS [None]
